FAERS Safety Report 7145219-4 (Version None)
Quarter: 2010Q4

REPORT INFORMATION
  Report Type: 
  Country: None (occurrence: None)
  Receive Date: 20101208
  Receipt Date: 20101130
  Transmission Date: 20110411
  Serious: Yes (Other)
  Sender: FDA-Public Use
  Company Number: GB-PFIZER INC-2010165772

PATIENT
  Age: 52 Year
  Sex: Male

DRUGS (4)
  1. NICOTINE [Suspect]
     Indication: SMOKING CESSATION THERAPY
     Dosage: 10 MG, UNK
     Route: 045
     Dates: start: 20100831, end: 20100921
  2. PAROXETINE [Concomitant]
     Indication: MENTAL DISORDER
     Dosage: 30 MG, UNK
     Route: 048
  3. RAMIPRIL [Concomitant]
     Indication: HYPERTENSION
     Dosage: 2.5 MG, UNK
     Route: 048
  4. SULPIRIDE [Concomitant]
     Dosage: 200 MG, UNK
     Route: 048

REACTIONS (1)
  - HALLUCINATION, AUDITORY [None]
